FAERS Safety Report 18498983 (Version 2)
Quarter: 2021Q1

REPORT INFORMATION
  Report Type: Spontaneous
  Country: US (occurrence: US)
  Receive Date: 20201112
  Receipt Date: 20210105
  Transmission Date: 20210419
  Serious: Yes (Life-Threatening, Hospitalization)
  Sender: FDA-Public Use
  Company Number: US-TEVA-2020-US-1846390

PATIENT
  Age: 28 Year
  Sex: Female

DRUGS (1)
  1. METFORMIN [Suspect]
     Active Substance: METFORMIN HYDROCHLORIDE
     Indication: INTENTIONAL OVERDOSE
     Dosage: 50 TABLETS
     Route: 065

REACTIONS (11)
  - Metabolic acidosis [Recovered/Resolved]
  - Haemodynamic instability [Unknown]
  - Rhabdomyolysis [Unknown]
  - Acute respiratory distress syndrome [Recovering/Resolving]
  - Abdominal compartment syndrome [Unknown]
  - Depressed level of consciousness [Unknown]
  - Distributive shock [Unknown]
  - Renal failure [Unknown]
  - Toxicity to various agents [Recovering/Resolving]
  - Intentional overdose [Unknown]
  - Respiratory failure [Recovering/Resolving]
